FAERS Safety Report 11344249 (Version 1)
Quarter: 2015Q3

REPORT INFORMATION
  Report Type: Spontaneous
  Country: GB (occurrence: None)
  Receive Date: 20150803
  Receipt Date: 20150803
  Transmission Date: 20151125
  Serious: No
  Sender: FDA-Public Use
  Company Number: None

PATIENT
  Age: 33 Year
  Sex: Male
  Weight: 110 kg

DRUGS (1)
  1. DEPAKOTE [Suspect]
     Active Substance: DIVALPROEX SODIUM
     Indication: BIPOLAR DISORDER
     Dosage: 2 500 IN THE MORNING    TWICE DAILY   TAKEN BY MOUTH?2 AT NIGHT
     Route: 048
     Dates: start: 20130402

REACTIONS (3)
  - Weight increased [None]
  - Affective disorder [None]
  - Abdominal distension [None]

NARRATIVE: CASE EVENT DATE: 20150610
